FAERS Safety Report 22203818 (Version 1)
Quarter: 2023Q2

REPORT INFORMATION
  Report Type: Spontaneous
  Country: JP (occurrence: JP)
  Receive Date: 20230412
  Receipt Date: 20230412
  Transmission Date: 20230721
  Serious: Yes (Other)
  Sender: FDA-Public Use
  Company Number: JP-MYLANLABS-2023M1037683

PATIENT
  Age: 93 Year
  Sex: Male
  Weight: 66 kg

DRUGS (6)
  1. GABAPENTIN [Suspect]
     Active Substance: GABAPENTIN
     Indication: Proctalgia
     Dosage: 200 MILLIGRAM, QD
     Route: 048
  2. GABAPENTIN [Suspect]
     Active Substance: GABAPENTIN
     Indication: Cancer pain
  3. HYDROMORPHONE HYDROCHLORIDE [Suspect]
     Active Substance: HYDROMORPHONE HYDROCHLORIDE
     Indication: Proctalgia
     Dosage: 2 MILLIGRAM, QD
     Route: 048
  4. HYDROMORPHONE HYDROCHLORIDE [Suspect]
     Active Substance: HYDROMORPHONE HYDROCHLORIDE
     Indication: Cancer pain
     Dosage: 1 MG WAS ADMINISTERED TWICE OR THRICE PER DAY
     Route: 048
  5. ACETAMINOPHEN [Suspect]
     Active Substance: ACETAMINOPHEN
     Indication: Proctalgia
     Dosage: 3600 MILLIGRAM, QD
     Route: 048
  6. ACETAMINOPHEN [Suspect]
     Active Substance: ACETAMINOPHEN
     Indication: Cancer pain

REACTIONS (2)
  - Hallucination [Unknown]
  - Product use in unapproved indication [Unknown]
